FAERS Safety Report 10249865 (Version 1)
Quarter: 2014Q2

REPORT INFORMATION
  Report Type: Spontaneous
  Country: US (occurrence: US)
  Receive Date: 20140620
  Receipt Date: 20140620
  Transmission Date: 20141212
  Serious: Yes (Other)
  Sender: FDA-Public Use
  Company Number: US-MYLANLABS-2014S1014102

PATIENT
  Sex: Male

DRUGS (1)
  1. RISPERIDONE TABLETS USP [Suspect]
     Dates: start: 2007

REACTIONS (3)
  - Pancreatic neoplasm [Not Recovered/Not Resolved]
  - Diabetes mellitus [Not Recovered/Not Resolved]
  - Erectile dysfunction [Not Recovered/Not Resolved]
